FAERS Safety Report 6294095-0 (Version None)
Quarter: 2009Q3

REPORT INFORMATION
  Report Type: 
  Country: None (occurrence: None)
  Receive Date: 20090803
  Receipt Date: 20081030
  Transmission Date: 20100115
  Serious: No
  Sender: FDA-Public Use
  Company Number: A0754398A

PATIENT
  Age: 41 Year
  Sex: Female

DRUGS (1)
  1. NICORETTE [Suspect]
     Dates: start: 20081025, end: 20081025

REACTIONS (4)
  - ABDOMINAL DISCOMFORT [None]
  - MALAISE [None]
  - RETCHING [None]
  - THROAT IRRITATION [None]
